FAERS Safety Report 18568875 (Version 4)
Quarter: 2020Q4

REPORT INFORMATION
  Report Type: Report from Study
  Country: FR (occurrence: FR)
  Receive Date: 20201202
  Receipt Date: 20201228
  Transmission Date: 20210114
  Serious: Yes (Death, Hospitalization, Other)
  Sender: FDA-Public Use
  Company Number: FR-GLAXOSMITHKLINE-FR2020EME236369

PATIENT
  Sex: Male
  Weight: 67 kg

DRUGS (5)
  1. BELANTAMAB MAFODOTIN. [Suspect]
     Active Substance: BELANTAMAB MAFODOTIN
     Dosage: 2.5 MG/KG, 1 CYC
     Route: 042
     Dates: start: 20200721
  2. BELANTAMAB MAFODOTIN. [Suspect]
     Active Substance: BELANTAMAB MAFODOTIN
     Dosage: 2.5 MG/KG, 1 CYC
     Route: 042
     Dates: start: 20200630
  3. BELANTAMAB MAFODOTIN. [Suspect]
     Active Substance: BELANTAMAB MAFODOTIN
     Dosage: 2.5 MG/KG, 1 CYC
     Route: 042
     Dates: start: 20200902
  4. BELANTAMAB MAFODOTIN. [Suspect]
     Active Substance: BELANTAMAB MAFODOTIN
     Indication: PLASMA CELL MYELOMA
     Dosage: 2.5 MG/KG, 1 CYC
     Route: 042
     Dates: start: 20200609
  5. BELANTAMAB MAFODOTIN. [Suspect]
     Active Substance: BELANTAMAB MAFODOTIN
     Dosage: 2.5 MG/KG, 1 CYC
     Route: 042
     Dates: start: 20200811

REACTIONS (3)
  - COVID-19 [Fatal]
  - Respiratory distress [Unknown]
  - Punctate keratitis [Not Recovered/Not Resolved]
